FAERS Safety Report 15575674 (Version 1)
Quarter: 2018Q4

REPORT INFORMATION
  Report Type: Spontaneous
  Country: US (occurrence: US)
  Receive Date: 20181101
  Receipt Date: 20181101
  Transmission Date: 20190205
  Serious: Yes (Hospitalization, Other)
  Sender: FDA-Public Use
  Company Number: US-ASTRAZENECA-2018SF40410

PATIENT
  Age: 47 Year
  Sex: Female
  Weight: 74 kg

DRUGS (5)
  1. LUPRON [Concomitant]
     Active Substance: LEUPROLIDE ACETATE
  2. IBRANCE [Suspect]
     Active Substance: PALBOCICLIB
     Route: 048
  3. FULVESTRANT. [Suspect]
     Active Substance: FULVESTRANT
     Indication: BREAST CANCER
     Route: 030
     Dates: start: 20180914
  4. FEMARA [Concomitant]
     Active Substance: LETROZOLE
  5. ENZALUTAMIDE [Suspect]
     Active Substance: ENZALUTAMIDE
     Indication: BREAST CANCER
     Route: 048
     Dates: start: 20180914

REACTIONS (9)
  - Pneumonia aspiration [Unknown]
  - Cholelithiasis [Unknown]
  - Lipase increased [Unknown]
  - Gallbladder obstruction [Unknown]
  - Bacterial test positive [Unknown]
  - Pneumonia [Unknown]
  - Cholestasis [Unknown]
  - Urine leukocyte esterase positive [Unknown]
  - Hepatic cirrhosis [Unknown]

NARRATIVE: CASE EVENT DATE: 20180919
